FAERS Safety Report 8956169 (Version 2)
Quarter: 2014Q2

REPORT INFORMATION
  Report Type: Spontaneous
  Country: US (occurrence: US)
  Receive Date: 20121210
  Receipt Date: 20131018
  Transmission Date: 20141212
  Serious: Yes (Death, Hospitalization, Other)
  Sender: FDA-Public Use
  Company Number: US-PFIZER INC-2012308833

PATIENT
  Age: 63 Year
  Sex: Male
  Weight: 90.7 kg

DRUGS (4)
  1. DEPO-MEDROL [Suspect]
     Indication: NECK PAIN
     Dosage: 80 MG/ML, UNK
     Dates: start: 20121022
  2. DEPO-MEDROL [Suspect]
     Indication: MUSCULOSKELETAL PAIN
  3. DEPO-MEDROL [Suspect]
     Indication: PAIN IN EXTREMITY
  4. DEPO-MEDROL [Suspect]
     Indication: HEADACHE

REACTIONS (4)
  - Myocardial infarction [Fatal]
  - Dizziness [Unknown]
  - Vision blurred [Unknown]
  - Nausea [Unknown]
